FAERS Safety Report 18534707 (Version 2)
Quarter: 2020Q4

REPORT INFORMATION
  Report Type: Spontaneous
  Country: US (occurrence: US)
  Receive Date: 20201123
  Receipt Date: 20201217
  Transmission Date: 20210114
  Serious: No
  Sender: FDA-Public Use
  Company Number: US-BIOVITRUM-2020US6650

PATIENT
  Sex: Male
  Weight: 4 kg

DRUGS (4)
  1. EPINEPHRINE HCL [Concomitant]
     Active Substance: EPINEPHRINE
  2. TYLENOL [Concomitant]
     Active Substance: ACETAMINOPHEN
  3. SYNAGIS [Suspect]
     Active Substance: PALIVIZUMAB
     Indication: ANTIVIRAL PROPHYLAXIS
     Route: 030
     Dates: start: 20201105
  4. PANTOPRAZOLE SODIUM. [Concomitant]
     Active Substance: PANTOPRAZOLE SODIUM

REACTIONS (1)
  - Pyrexia [Recovered/Resolved]
